FAERS Safety Report 5407438-4 (Version None)
Quarter: 2007Q3

REPORT INFORMATION
  Report Type: 
  Country: None (occurrence: None)
  Receive Date: 20070807
  Receipt Date: 20070727
  Transmission Date: 20080115
  Serious: Yes (Hospitalization, Other)
  Sender: FDA-Public Use
  Company Number: US-PFIZER INC-2007062887

PATIENT
  Sex: Male
  Weight: 90.7 kg

DRUGS (8)
  1. LIPITOR [Suspect]
     Indication: BLOOD CHOLESTEROL
     Route: 048
     Dates: start: 20020101, end: 20070201
  2. PLAVIX [Concomitant]
     Route: 048
  3. VALSARTAN [Concomitant]
     Route: 048
  4. TRICOR [Concomitant]
     Route: 048
  5. OMEGA [Concomitant]
     Route: 048
  6. ASPIRIN [Concomitant]
     Route: 048
  7. DIURETICS [Concomitant]
     Route: 048
  8. POTASSIUM CHLORIDE [Concomitant]
     Route: 048

REACTIONS (4)
  - CARDIAC ENZYMES INCREASED [None]
  - MUSCLE SPASMS [None]
  - MUSCULAR WEAKNESS [None]
  - MYALGIA [None]
